FAERS Safety Report 6347678-3 (Version None)
Quarter: 2009Q3

REPORT INFORMATION
  Report Type: 
  Country: None (occurrence: None)
  Receive Date: 20090910
  Receipt Date: 20090903
  Transmission Date: 20100115
  Serious: Yes (Hospitalization, Other)
  Sender: FDA-Public Use
  Company Number: DE-BAYER-200927917GPV

PATIENT
  Age: 38 Year
  Sex: Female
  Weight: 75 kg

DRUGS (3)
  1. ULTRAVIST 300 [Suspect]
     Indication: COMPUTERISED TOMOGRAM HEAD
     Route: 042
     Dates: start: 20090408
  2. FENISTIL [Concomitant]
     Indication: HYPERSENSITIVITY
     Dosage: 1 AMP.
     Route: 042
  3. TAGAMET [Concomitant]
     Indication: HYPERSENSITIVITY
     Dosage: 1 AMP.
     Route: 042

REACTIONS (5)
  - ANAPHYLACTOID REACTION [None]
  - CARDIOVASCULAR DISORDER [None]
  - NAUSEA [None]
  - TACHYCARDIA [None]
  - URTICARIA [None]
